FAERS Safety Report 25250530 (Version 2)
Quarter: 2025Q2

REPORT INFORMATION
  Report Type: Spontaneous
  Country: US (occurrence: US)
  Receive Date: 20250429
  Receipt Date: 20250518
  Transmission Date: 20250716
  Serious: No
  Sender: MERCK SHARP & DOHME LLC
  Company Number: US-009507513-2280096

PATIENT
  Sex: Female
  Weight: 74.8 kg

DRUGS (29)
  1. SOTATERCEPT [Suspect]
     Active Substance: SOTATERCEPT
     Indication: Product used for unknown indication
  2. SOTATERCEPT [Suspect]
     Active Substance: SOTATERCEPT
  3. SOTATERCEPT [Suspect]
     Active Substance: SOTATERCEPT
  4. SOTATERCEPT [Suspect]
     Active Substance: SOTATERCEPT
  5. REMODULIN [Suspect]
     Active Substance: TREPROSTINIL
     Indication: Pulmonary arterial hypertension
     Route: 058
     Dates: start: 20230525
  6. TADALAFIL [Concomitant]
     Active Substance: TADALAFIL
  7. POTASSIUM CHLORIDE [Concomitant]
     Active Substance: POTASSIUM CHLORIDE
  8. LASIX [Concomitant]
     Active Substance: FUROSEMIDE
  9. INSULIN LISPRO JUNIOR KWIKPEN [Concomitant]
     Active Substance: INSULIN LISPRO
  10. TRAMADOL HCL [Concomitant]
     Active Substance: TRAMADOL HYDROCHLORIDE
  11. BIOTIN [Concomitant]
     Active Substance: BIOTIN
  12. OXYGEN [Concomitant]
     Active Substance: OXYGEN
  13. OPSUMIT [Concomitant]
     Active Substance: MACITENTAN
  14. MIRTAZAPINE [Concomitant]
     Active Substance: MIRTAZAPINE
  15. VELETRI [Concomitant]
     Active Substance: EPOPROSTENOL
  16. SPIRONOLACTONE [Concomitant]
     Active Substance: SPIRONOLACTONE
  17. BENADRYL ALLERGY [Concomitant]
     Active Substance: DIPHENHYDRAMINE HYDROCHLORIDE
  18. PAROXETINE HYDROCHLORIDE [Concomitant]
     Active Substance: PAROXETINE HYDROCHLORIDE
  19. GABAPENTIN [Concomitant]
     Active Substance: GABAPENTIN
  20. MODERNA COVID-19 VACCINE [Concomitant]
     Active Substance: ELASOMERAN
  21. LAMOTRIGINE [Concomitant]
     Active Substance: LAMOTRIGINE
  22. ONDANSETRON HYDROCHLORIDE [Concomitant]
     Active Substance: ONDANSETRON HYDROCHLORIDE
  23. OZEMPIC [Concomitant]
     Active Substance: SEMAGLUTIDE
  24. STERILE WATER [Concomitant]
     Active Substance: WATER
  25. TRESIBA [Concomitant]
     Active Substance: INSULIN DEGLUDEC
  26. SYNTHROID [Concomitant]
     Active Substance: LEVOTHYROXINE SODIUM
  27. PROTONIX [Concomitant]
     Active Substance: PANTOPRAZOLE SODIUM
  28. TRELEGY ELLIPTA [Concomitant]
     Active Substance: FLUTICASONE FUROATE\UMECLIDINIUM BROMIDE\VILANTEROL TRIFENATATE
  29. ATROPINE\DIPHENOXYLATE [Concomitant]
     Active Substance: ATROPINE\DIPHENOXYLATE

REACTIONS (4)
  - Nausea [Unknown]
  - Diarrhoea [Unknown]
  - Fatigue [Unknown]
  - Headache [Unknown]
